FAERS Safety Report 7985746-0 (Version None)
Quarter: 2011Q4

REPORT INFORMATION
  Report Type: 
  Country: None (occurrence: None)
  Receive Date: 20111214
  Receipt Date: 20111207
  Transmission Date: 20120403
  Serious: Yes (Death, Life-Threatening, Hospitalization)
  Sender: FDA-Public Use
  Company Number: 2007SP017494

PATIENT
  Age: 67 Year
  Sex: Male
  Weight: 50 kg

DRUGS (9)
  1. DAI-KENCHU-TO [Concomitant]
  2. SULFAMETHOXAZOLE AND TRIMETHOPRIM [Concomitant]
  3. MOTILIUM [Concomitant]
  4. MAGMITT [Concomitant]
  5. FAMOTIDINE [Concomitant]
  6. TEMODAL [Suspect]
     Indication: ANAPLASTIC ASTROCYTOMA
     Dosage: 120 MG/M2;QD;PO, 120 MG/M2;QD;PO
     Route: 048
     Dates: start: 20070416, end: 20070419
  7. TEMODAL [Suspect]
     Indication: ANAPLASTIC ASTROCYTOMA
     Dosage: 120 MG/M2;QD;PO, 120 MG/M2;QD;PO
     Route: 048
     Dates: start: 20070423, end: 20070525
  8. DECADRON [Concomitant]
  9. GLYCEOL [Concomitant]

REACTIONS (4)
  - GASTROINTESTINAL PERFORATION [None]
  - NEUTROPHIL COUNT DECREASED [None]
  - WHITE BLOOD CELL COUNT INCREASED [None]
  - SEPTIC SHOCK [None]
